FAERS Safety Report 5826112-3 (Version None)
Quarter: 2008Q2

REPORT INFORMATION
  Report Type: 
  Country: None (occurrence: None)
  Receive Date: 20080623
  Receipt Date: 20080710
  Transmission Date: 20081010
  Serious: Yes (Life-Threatening, Hospitalization)
  Sender: FDA-Public Use
  Company Number: 2008AL005700

PATIENT
  Sex: Female

DRUGS (1)
  1. DIGOXIN [Suspect]
     Dosage: 0.25 MG,

REACTIONS (3)
  - CARDIAC FAILURE [None]
  - HEART RATE DECREASED [None]
  - THERAPEUTIC AGENT TOXICITY [None]
